FAERS Safety Report 5456548-4 (Version None)
Quarter: 2007Q3

REPORT INFORMATION
  Report Type: 
  Country: None (occurrence: None)
  Receive Date: 20070918
  Receipt Date: 20070912
  Transmission Date: 20080115
  Serious: Yes (Death, Hospitalization, Other)
  Sender: FDA-Public Use
  Company Number: B0480489A

PATIENT
  Age: 45 Year
  Sex: Female
  Weight: 62 kg

DRUGS (3)
  1. LAPATINIB [Suspect]
     Dosage: 1000MG PER DAY
     Route: 048
     Dates: start: 20070417, end: 20070709
  2. CAPECITABINE [Suspect]
     Dosage: 3G PER DAY
     Route: 048
     Dates: start: 20070417, end: 20070709
  3. BONDRONAT [Concomitant]
     Route: 042
     Dates: start: 20050901

REACTIONS (6)
  - CARDIOVASCULAR DISORDER [None]
  - EJECTION FRACTION [None]
  - NAUSEA [None]
  - SOMNOLENCE [None]
  - VERTIGO [None]
  - VOMITING [None]
